FAERS Safety Report 7575954-5 (Version None)
Quarter: 2011Q2

REPORT INFORMATION
  Report Type: 
  Country: None (occurrence: None)
  Receive Date: 20110628
  Receipt Date: 20080620
  Transmission Date: 20111010
  Serious: No
  Sender: FDA-Public Use
  Company Number: 2008BI016504

PATIENT
  Age: 36 Year
  Sex: Female

DRUGS (3)
  1. TYSABRI [Suspect]
     Indication: MULTIPLE SCLEROSIS
     Route: 042
     Dates: start: 20080611
  2. TRAZODONE HCL [Concomitant]
     Indication: SLEEP DISORDER
  3. AVONEX [Concomitant]
     Indication: MULTIPLE SCLEROSIS
     Route: 030
     Dates: start: 20040402

REACTIONS (6)
  - MIGRAINE [None]
  - ASTHENIA [None]
  - RASH PRURITIC [None]
  - TREMOR [None]
  - FUNGAL INFECTION [None]
  - DEPRESSED MOOD [None]
